FAERS Safety Report 9596877 (Version 1)
Quarter: 2013Q4

REPORT INFORMATION
  Report Type: Spontaneous
  Country: IT (occurrence: IT)
  Receive Date: 20131004
  Receipt Date: 20131004
  Transmission Date: 20140711
  Serious: Yes (Other)
  Sender: FDA-Public Use
  Company Number: IT-FRI-1000049411

PATIENT
  Age: 83 Year
  Sex: Male

DRUGS (1)
  1. NEBIVOLOL [Suspect]
     Dosage: 5 MG
     Route: 048
     Dates: start: 20130101

REACTIONS (2)
  - Altered state of consciousness [Recovering/Resolving]
  - Sinus bradycardia [Recovering/Resolving]
